FAERS Safety Report 9168881 (Version 1)
Quarter: 2013Q1

REPORT INFORMATION
  Report Type: Report from Study
  Country: US (occurrence: US)
  Receive Date: 20130318
  Receipt Date: 20130318
  Transmission Date: 20140127
  Serious: No
  Sender: FDA-Public Use
  Company Number: US-009507513-1303USA008022

PATIENT
  Sex: Male

DRUGS (4)
  1. VICTRELIS [Suspect]
     Indication: CHRONIC HEPATITIS C
     Dosage: UNK
     Dates: start: 20120907
  2. REBETOL [Suspect]
     Indication: CHRONIC HEPATITIS C
     Dosage: 1200 MG, QD (DIVIDED DOSE)
     Route: 048
     Dates: start: 20120809
  3. REBETOL [Suspect]
     Dosage: 800 MG, QD (DIVIDED DOSE)
     Route: 048
     Dates: start: 20120809
  4. PEGASYS [Suspect]
     Indication: CHRONIC HEPATITIS C
     Dosage: 180 MICROGRAM, QW
     Route: 058
     Dates: start: 20120809

REACTIONS (8)
  - Paraesthesia [Unknown]
  - Weight decreased [Unknown]
  - Pain in extremity [Unknown]
  - Arthralgia [Unknown]
  - Dysgeusia [Unknown]
  - Decreased appetite [Unknown]
  - Anaemia [Unknown]
  - Rash [Unknown]
